FAERS Safety Report 21558442 (Version 1)
Quarter: 2022Q4

REPORT INFORMATION
  Report Type: Spontaneous
  Country: IR (occurrence: IR)
  Receive Date: 20221107
  Receipt Date: 20221107
  Transmission Date: 20230113
  Serious: Yes (Death, Hospitalization, Other)
  Sender: FDA-Public Use
  Company Number: IR-WOCKHARDT LIMITED-2022WLD000041

PATIENT
  Age: 20 Year
  Sex: Male

DRUGS (1)
  1. SUMATRIPTAN [Suspect]
     Active Substance: SUMATRIPTAN
     Indication: Product used for unknown indication
     Dosage: 30 VIALS (EACH VIAL IS 6 MG/0.5 ML SOLUTION)
     Route: 065
     Dates: start: 202202

REACTIONS (12)
  - Pulmonary embolism [Fatal]
  - Cardio-respiratory arrest [Fatal]
  - Brain oedema [Fatal]
  - Toxicity to various agents [Unknown]
  - Suicide attempt [Unknown]
  - Hepatic enzyme increased [Unknown]
  - Hypernatraemia [Unknown]
  - Haematuria [Unknown]
  - Proteinuria [Unknown]
  - Blood lactate dehydrogenase increased [Unknown]
  - Blood creatinine increased [Unknown]
  - Blood creatine phosphokinase increased [Unknown]
